FAERS Safety Report 10431367 (Version 1)
Quarter: 2014Q3

REPORT INFORMATION
  Report Type: Spontaneous
  Country: US (occurrence: None)
  Receive Date: 20140903
  Receipt Date: 20140903
  Transmission Date: 20150326
  Serious: No
  Sender: FDA-Public Use
  Company Number: 2014-12673

PATIENT
  Sex: Female

DRUGS (1)
  1. HYDROXYZINE PAMOATE (WATSON LABORATORIES) (HYDROXYZINE) CAPSULE [Suspect]
     Active Substance: HYDROXYZINE PAMOATE
     Indication: PRODUCT USED FOR UNKNOWN INDICATION

REACTIONS (3)
  - Cough [None]
  - Adverse drug reaction [None]
  - Headache [None]
